FAERS Safety Report 24147824 (Version 1)
Quarter: 2024Q3

REPORT INFORMATION
  Report Type: Report from Study
  Country: DE (occurrence: DE)
  Receive Date: 20240729
  Receipt Date: 20240729
  Transmission Date: 20241016
  Serious: Yes (Hospitalization)
  Sender: MYLAN
  Company Number: DE-EMA-DD-20240715-7482677-084326

PATIENT
  Age: 63 Year
  Sex: Male
  Weight: 65 kg

DRUGS (31)
  1. AMOXICILLIN [Suspect]
     Active Substance: AMOXICILLIN
     Indication: Bronchitis
     Dosage: UNK (1 OR 2 TAB/DAY; SINGLE DOSE 750 MG)
     Route: 048
     Dates: start: 19981107
  2. FUROSEMIDE [Suspect]
     Active Substance: FUROSEMIDE
     Indication: Product used for unknown indication
     Dosage: UNSPECIFIED ( 2 TIMES 1 AMP )
     Route: 048
     Dates: start: 19981107
  3. DIAZEPAM [Suspect]
     Active Substance: DIAZEPAM
     Indication: Restlessness
     Dosage: UNK
     Route: 048
     Dates: start: 19981107, end: 19981107
  4. FLUVASTATIN SODIUM [Suspect]
     Active Substance: FLUVASTATIN SODIUM
     Indication: Hypercholesterolaemia
     Dosage: UNK
     Route: 048
     Dates: start: 19981023, end: 19981106
  5. ASPIRIN [Suspect]
     Active Substance: ASPIRIN
     Indication: Coronary artery disease
     Dosage: UNK
     Route: 048
  6. FUROSEMIDE [Suspect]
     Active Substance: FUROSEMIDE
     Indication: Oedema
     Dosage: 2 DOSAGE FORM, QD
     Route: 048
     Dates: end: 19981106
  7. MCP [Suspect]
     Active Substance: METOCLOPRAMIDE HYDROCHLORIDE
     Indication: Illness
     Dosage: UNK (AMP 1)
     Route: 042
     Dates: start: 19981107, end: 19981107
  8. NITROGLYCERIN [Suspect]
     Active Substance: NITROGLYCERIN
     Indication: Angina pectoris
     Dosage: UNK
     Route: 042
     Dates: start: 19981107, end: 19981108
  9. NITROGLYCERIN [Suspect]
     Active Substance: NITROGLYCERIN
     Indication: Angina pectoris
     Dosage: UNSPECIFIED
     Route: 048
     Dates: start: 19981107, end: 19981107
  10. NITROGLYCERIN [Suspect]
     Active Substance: NITROGLYCERIN
     Dosage: UNSPECIFIED
     Route: 048
     Dates: start: 19981109
  11. HEPARIN [Suspect]
     Active Substance: HEPARIN SODIUM
     Indication: Thrombosis
     Dosage: UNSPECIFIED
     Route: 042
     Dates: start: 19981107, end: 19981109
  12. HEPARIN [Suspect]
     Active Substance: HEPARIN SODIUM
     Dosage: UNK
     Route: 058
     Dates: start: 19981107, end: 19981107
  13. ACETAMINOPHEN [Suspect]
     Active Substance: ACETAMINOPHEN
     Indication: Pyrexia
     Dosage: UNK
     Route: 054
     Dates: start: 19981108, end: 19981109
  14. ISOSORBIDE DINITRATE [Suspect]
     Active Substance: ISOSORBIDE DINITRATE
     Indication: Coronary artery disease
     Dosage: UNK
     Route: 048
     Dates: start: 19981108
  15. NOVALGIN (METAMIZOLE SODIUM) [Suspect]
     Active Substance: METAMIZOLE SODIUM
     Indication: Pain
     Dosage: 20 DROPS/ DAY, QD
     Route: 048
     Dates: start: 19981107, end: 19981107
  16. MOLSIDOMINE [Suspect]
     Active Substance: MOLSIDOMINE
     Indication: Coronary artery disease
     Dosage: TAB 1
     Route: 048
     Dates: start: 19981108
  17. MCP [Suspect]
     Active Substance: METOCLOPRAMIDE HYDROCHLORIDE
     Indication: Illness
     Dosage: AMP 1
     Route: 048
     Dates: end: 19981106
  18. ACETYLCYSTEINE [Suspect]
     Active Substance: ACETYLCYSTEINE
     Indication: Cough
     Dosage: 20 DROPS, QD (PER DAY)
     Route: 048
     Dates: start: 19981109, end: 19981109
  19. URAPIDIL [Suspect]
     Active Substance: URAPIDIL
     Indication: Angina pectoris
     Dosage: UNK (AMP 1)
     Route: 042
     Dates: start: 19981107, end: 19981107
  20. FUROSEMIDE [Suspect]
     Active Substance: FUROSEMIDE
     Indication: Coronary artery insufficiency
     Dosage: UNK
     Route: 042
  21. ACETYLCYSTEINE [Suspect]
     Active Substance: ACETYLCYSTEINE
     Indication: Mucosal inflammation
     Dosage: TAB 1
     Route: 048
     Dates: start: 19981108
  22. LASIX [Suspect]
     Active Substance: FUROSEMIDE
     Indication: Coronary artery insufficiency
     Dosage: UNK
     Route: 042
     Dates: start: 19981107, end: 19981107
  23. ACTRAPID [Suspect]
     Active Substance: INSULIN HUMAN
     Indication: Diabetes mellitus
     Dosage: UNK (REPORTED: 6 - 52 IU/DAY)
     Route: 042
     Dates: start: 19981107, end: 19981107
  24. ALLOPURINOL [Suspect]
     Active Substance: ALLOPURINOL
     Indication: Hyperuricaemia
     Dosage: UNK (1 - 0.5 TAB/DAY)
     Route: 048
     Dates: start: 19980925, end: 19981106
  25. MORPHINE [Suspect]
     Active Substance: MORPHINE
     Indication: Pain
     Dosage: UNK
     Route: 042
     Dates: start: 19981107, end: 19981107
  26. ASPIRIN DL-LYSINE [Suspect]
     Active Substance: ASPIRIN DL-LYSINE
     Indication: Angina pectoris
     Dosage: UNK
     Route: 042
     Dates: start: 19981107, end: 19981107
  27. PANTOZOL [Suspect]
     Active Substance: PANTOPRAZOLE SODIUM
     Indication: Gastric ulcer
     Dosage: TAB 1
     Route: 048
     Dates: start: 19981107
  28. CARVEDILOL [Concomitant]
     Active Substance: CARVEDILOL
     Indication: Hypertension
     Dosage: UNK
     Route: 048
  29. ISMN BASICS [Concomitant]
     Indication: Coronary artery disease
     Dosage: UNK
     Route: 048
     Dates: end: 19981106
  30. INSULIN NOS [Concomitant]
     Active Substance: INSULIN NOS
     Indication: Diabetes mellitus
     Dosage: QD (48 - 0 - 22 IU/DAY)
     Route: 058
  31. MOLSIDOMINE [Concomitant]
     Active Substance: MOLSIDOMINE
     Indication: Coronary artery disease
     Dosage: UNK
     Route: 048
     Dates: end: 19981106

REACTIONS (11)
  - Skin disorder [Unknown]
  - Leukocytosis [Unknown]
  - Ocular hyperaemia [Unknown]
  - Blood creatinine increased [Unknown]
  - Blood urea increased [Unknown]
  - Pyrexia [Unknown]
  - Stevens-Johnson syndrome [Recovered/Resolved]
  - Erythema multiforme [Recovered/Resolved]
  - Rash [Unknown]
  - Oral mucosal eruption [Unknown]
  - Pruritus [Unknown]

NARRATIVE: CASE EVENT DATE: 19981108
